APPROVED DRUG PRODUCT: ROPIVACAINE HYDROCHLORIDE
Active Ingredient: ROPIVACAINE HYDROCHLORIDE
Strength: 200MG/20ML (10MG/ML)
Dosage Form/Route: SOLUTION;INJECTION
Application: A219883 | Product #003 | TE Code: AP
Applicant: ANTHEA PHARMA PRIVATE LTD
Approved: Mar 21, 2025 | RLD: No | RS: No | Type: RX